FAERS Safety Report 12205306 (Version 1)
Quarter: 2016Q1

REPORT INFORMATION
  Report Type: Spontaneous
  Country: FR (occurrence: FR)
  Receive Date: 20160323
  Receipt Date: 20160323
  Transmission Date: 20160526
  Serious: Yes (Other)
  Sender: FDA-Public Use
  Company Number: FR-009507513-1603FRA009964

PATIENT
  Age: 58 Year
  Sex: Male

DRUGS (3)
  1. BECOTIDE [Suspect]
     Active Substance: BECLOMETHASONE DIPROPIONATE
     Dosage: 1 DF, QD
     Route: 055
     Dates: start: 19900101
  2. SINGULAIR [Suspect]
     Active Substance: MONTELUKAST SODIUM
     Dosage: 1 DF, QD
     Route: 048
     Dates: start: 20000101
  3. SEREVENT DISKUS [Suspect]
     Active Substance: SALMETEROL XINAFOATE
     Dosage: 1 DF, BID
     Route: 055
     Dates: start: 19900101, end: 20160202

REACTIONS (2)
  - Supraventricular extrasystoles [Recovered/Resolved]
  - Palpitations [Recovered/Resolved]

NARRATIVE: CASE EVENT DATE: 20150901
